FAERS Safety Report 22281560 (Version 1)
Quarter: 2023Q2

REPORT INFORMATION
  Report Type: Spontaneous
  Country: US (occurrence: US)
  Receive Date: 20230504
  Receipt Date: 20230504
  Transmission Date: 20230722
  Serious: Yes (Other)
  Sender: FDA-Public Use
  Company Number: US-SA-SAC20230503000051

PATIENT
  Sex: Female
  Weight: 68.039 kg

DRUGS (1)
  1. DUPIXENT [Suspect]
     Active Substance: DUPILUMAB
     Indication: Dermatitis atopic
     Dosage: 300 MG, QOW
     Route: 058

REACTIONS (7)
  - Eye haemorrhage [Unknown]
  - Lacrimation increased [Unknown]
  - Pruritus [Unknown]
  - Insomnia [Unknown]
  - Eye pruritus [Unknown]
  - Injection site reaction [Unknown]
  - Oral herpes [Unknown]
